FAERS Safety Report 8832472 (Version 1)
Quarter: 2012Q4

REPORT INFORMATION
  Report Type: Spontaneous
  Country: GB (occurrence: None)
  Receive Date: 20121005
  Receipt Date: 20121005
  Transmission Date: 20130627
  Serious: Yes (Life-Threatening, Hospitalization, Other)
  Sender: FDA-Public Use
  Company Number: 2012P1059904

PATIENT
  Age: 77 Year
  Sex: Female

DRUGS (1)
  1. FENTANYL [Suspect]
     Indication: CHRONIC BACK PAIN
     Route: 062

REACTIONS (11)
  - Loss of consciousness [None]
  - Respiratory depression [None]
  - Miosis [None]
  - Erythema [None]
  - Blister [None]
  - Dehydration [None]
  - Renal failure acute [None]
  - Electrolyte imbalance [None]
  - Coma [None]
  - Hyperthermia [None]
  - Sunburn [None]
